FAERS Safety Report 18714112 (Version 2)
Quarter: 2021Q1

REPORT INFORMATION
  Report Type: Report from Study
  Country: EG (occurrence: EG)
  Receive Date: 20210107
  Receipt Date: 20210305
  Transmission Date: 20210419
  Serious: Yes (Other)
  Sender: FDA-Public Use
  Company Number: EG-BAYER-2021-000124

PATIENT
  Sex: Female

DRUGS (2)
  1. BETAFERON [Suspect]
     Active Substance: INTERFERON BETA-1B
     Indication: MULTIPLE SCLEROSIS
  2. BETACOMFORT [Suspect]
     Active Substance: DEVICE

REACTIONS (3)
  - Surgery [Unknown]
  - Injection site discolouration [Not Recovered/Not Resolved]
  - Injection site mass [Not Recovered/Not Resolved]
